FAERS Safety Report 13505051 (Version 1)
Quarter: 2017Q2

REPORT INFORMATION
  Report Type: Spontaneous
  Country: FR (occurrence: FR)
  Receive Date: 20170502
  Receipt Date: 20170502
  Transmission Date: 20170830
  Serious: Yes (Death)
  Sender: FDA-Public Use
  Company Number: PHHY2017FR063376

PATIENT
  Sex: Male
  Weight: 2.41 kg

DRUGS (2)
  1. NEORAL [Suspect]
     Active Substance: CYCLOSPORINE
     Indication: FOETAL EXPOSURE DURING PREGNANCY
     Dosage: MATERNAL DOSE 175 MG, BID
     Route: 064
  2. NEORAL [Suspect]
     Active Substance: CYCLOSPORINE
     Dosage: MATERNAL DOSE 50 MG, BID
     Route: 064

REACTIONS (5)
  - Hypertrophic cardiomyopathy [Fatal]
  - Low set ears [Fatal]
  - Hypertelorism of orbit [Fatal]
  - Foetal exposure during pregnancy [Unknown]
  - Dysmorphism [Fatal]

NARRATIVE: CASE EVENT DATE: 20160712
